FAERS Safety Report 25264695 (Version 1)
Quarter: 2025Q2

REPORT INFORMATION
  Report Type: Report from Study
  Country: CO (occurrence: CO)
  Receive Date: 20250502
  Receipt Date: 20250502
  Transmission Date: 20250717
  Serious: Yes (Hospitalization)
  Sender: BIOVITRUM
  Company Number: CO-AstraZeneca-CH-00855881A

PATIENT
  Age: 3 Month
  Sex: Male

DRUGS (1)
  1. PALIVIZUMAB [Suspect]
     Active Substance: PALIVIZUMAB
     Indication: Antiviral prophylaxis
     Route: 030
     Dates: start: 20250304

REACTIONS (5)
  - Diarrhoea [Unknown]
  - Vomiting [Unknown]
  - Dehydration [Unknown]
  - Tachycardia [Unknown]
  - Metabolic acidosis [Unknown]

NARRATIVE: CASE EVENT DATE: 20250422
